FAERS Safety Report 5027755-X (Version None)
Quarter: 2006Q2

REPORT INFORMATION
  Report Type: 
  Country: None (occurrence: None)
  Receive Date: 20060428
  Receipt Date: 20060122
  Transmission Date: 20061013
  Serious: Yes (Death, Life-Threatening, Hospitalization)
  Sender: FDA-Public Use
  Company Number: COT_0389_2006

PATIENT
  Age: 61 Year
  Sex: Female
  Weight: 76.6579 kg

DRUGS (9)
  1. VENTAVIS [Suspect]
     Indication: PULMONARY HYPERTENSION
     Dosage: 5 MCG 6XD IH
     Route: 055
     Dates: start: 20050524
  2. VENTAVIS [Suspect]
     Indication: PULMONARY HYPERTENSION
     Dosage: 2.5 MCG 6XD IH
     Route: 055
     Dates: end: 20060119
  3. SILDENAFIL [Concomitant]
  4. DEMADEX [Concomitant]
  5. TRAVATAN [Concomitant]
  6. FLOVENT [Concomitant]
  7. CARTIA XT [Concomitant]
  8. FOLIC ACID [Concomitant]
  9. FOSAMAX [Concomitant]

REACTIONS (7)
  - CONDITION AGGRAVATED [None]
  - DYSPNOEA [None]
  - LUNG INFILTRATION [None]
  - PLEURAL EFFUSION [None]
  - PULMONARY HYPERTENSION [None]
  - RIGHT VENTRICULAR FAILURE [None]
  - SYNCOPE [None]
